FAERS Safety Report 7380245-1 (Version None)
Quarter: 2011Q1

REPORT INFORMATION
  Report Type: 
  Country: None (occurrence: None)
  Receive Date: 20110318
  Receipt Date: 20110311
  Transmission Date: 20110831
  Serious: Yes (Life-Threatening)
  Sender: FDA-Public Use
  Company Number: GER/UKI/11/0017672

PATIENT
  Age: 70 Year
  Sex: Male

DRUGS (2)
  1. OXYBUTYNIN [Concomitant]
  2. OMEPRAZOLE [Suspect]
     Indication: PRODUCT USED FOR UNKNOWN INDICATION
     Dates: start: 20101115, end: 20110207

REACTIONS (1)
  - TUBULOINTERSTITIAL NEPHRITIS [None]
